FAERS Safety Report 24309343 (Version 1)
Quarter: 2024Q3

REPORT INFORMATION
  Report Type: Spontaneous
  Country: US (occurrence: US)
  Receive Date: 20240911
  Receipt Date: 20240911
  Transmission Date: 20241016
  Serious: No
  Sender: SUNOVION
  Company Number: US-SMPA-2024SPA001831AA

PATIENT

DRUGS (11)
  1. ORGOVYX [Suspect]
     Active Substance: RELUGOLIX
     Indication: Prostate cancer
     Dosage: 360 MG, SINGLE
     Route: 048
     Dates: start: 20240819, end: 20240819
  2. ORGOVYX [Suspect]
     Active Substance: RELUGOLIX
     Dosage: 120 MG, QD
     Route: 048
     Dates: start: 20240820
  3. DEXILANT [Concomitant]
     Active Substance: DEXLANSOPRAZOLE
  4. LISINOPRIL [Concomitant]
     Active Substance: LISINOPRIL
  5. FERROUS SULFATE [Concomitant]
     Active Substance: FERROUS SULFATE
  6. NAPROXEN [Concomitant]
     Active Substance: NAPROXEN
  7. GABAPENTIN [Concomitant]
     Active Substance: GABAPENTIN
  8. ATORVASTATIN [Concomitant]
     Active Substance: ATORVASTATIN
  9. FLOMAX [Concomitant]
     Active Substance: TAMSULOSIN HYDROCHLORIDE
  10. DUTASTERIDE [Concomitant]
     Active Substance: DUTASTERIDE
  11. CIPROFLOXACIN [Concomitant]
     Active Substance: CIPROFLOXACIN

REACTIONS (1)
  - Hot flush [Unknown]
